FAERS Safety Report 5637876-6 (Version None)
Quarter: 2008Q1

REPORT INFORMATION
  Report Type: 
  Country: None (occurrence: None)
  Receive Date: 20080222
  Receipt Date: 20080222
  Transmission Date: 20080703
  Serious: Yes (Hospitalization)
  Sender: FDA-Public Use
  Company Number: None

PATIENT
  Age: 42 Year
  Sex: Male
  Weight: 95.2554 kg

DRUGS (1)
  1. DILANTIN [Suspect]
     Indication: EPILEPSY
     Dosage: 100MG 5 PER DAY,-NOW- PO
     Route: 048
     Dates: start: 20071018, end: 20080221

REACTIONS (5)
  - CONVULSION [None]
  - DRUG INEFFECTIVE [None]
  - IMPAIRED WORK ABILITY [None]
  - INCORRECT DOSE ADMINISTERED [None]
  - PHARMACEUTICAL PRODUCT COMPLAINT [None]
